FAERS Safety Report 14210854 (Version 1)
Quarter: 2017Q4

REPORT INFORMATION
  Report Type: Spontaneous
  Country: US (occurrence: US)
  Receive Date: 20171121
  Receipt Date: 20171121
  Transmission Date: 20180321
  Serious: No
  Sender: FDA-Public Use
  Company Number: US-BAUSCH-BL-2017-012431

PATIENT
  Age: 76 Year
  Sex: Male

DRUGS (4)
  1. PROLENSA [Suspect]
     Active Substance: BROMFENAC SODIUM
     Indication: PREOPERATIVE CARE
     Dosage: BEDTIME IN THE RIGHT EYE
     Route: 047
     Dates: start: 20170415
  2. PROLENSA [Suspect]
     Active Substance: BROMFENAC SODIUM
     Dosage: IN THE RIGHT EYE
     Route: 047
     Dates: start: 201704
  3. LOTEMAX [Suspect]
     Active Substance: LOTEPREDNOL ETABONATE
     Indication: POSTOPERATIVE CARE
     Dosage: IN THE RIGHT EYE
     Route: 047
     Dates: start: 20170421
  4. PROLENSA [Suspect]
     Active Substance: BROMFENAC SODIUM
     Indication: POSTOPERATIVE CARE
     Dosage: BEDTIME IN THE LEFT EYE
     Route: 047
     Dates: start: 20170401, end: 20170416

REACTIONS (2)
  - Eye swelling [Recovering/Resolving]
  - Visual impairment [Recovering/Resolving]

NARRATIVE: CASE EVENT DATE: 2017
